FAERS Safety Report 7752254-1 (Version None)
Quarter: 2011Q3

REPORT INFORMATION
  Report Type: 
  Country: None (occurrence: None)
  Receive Date: 20110915
  Receipt Date: 20110907
  Transmission Date: 20111222
  Serious: No
  Sender: FDA-Public Use
  Company Number: US-PFIZER INC-2011212480

PATIENT
  Age: 32 Year
  Sex: Female

DRUGS (1)
  1. DAYPRO [Suspect]
     Indication: FIBROMYALGIA

REACTIONS (1)
  - HEADACHE [None]
